FAERS Safety Report 8272173-4 (Version None)
Quarter: 2012Q2

REPORT INFORMATION
  Report Type: 
  Country: None (occurrence: None)
  Receive Date: 20120410
  Receipt Date: 20120404
  Transmission Date: 20120825
  Serious: Yes (Other)
  Sender: FDA-Public Use
  Company Number: US-JNJFOC-20120402368

PATIENT
  Age: 23 Year
  Sex: Male

DRUGS (1)
  1. STELARA [Suspect]
     Indication: HIDRADENITIS
     Route: 058
     Dates: start: 20120301

REACTIONS (4)
  - HEADACHE [None]
  - GAIT DISTURBANCE [None]
  - DYSARTHRIA [None]
  - OFF LABEL USE [None]
